FAERS Safety Report 6665937-1 (Version None)
Quarter: 2010Q2

REPORT INFORMATION
  Report Type: 
  Country: None (occurrence: None)
  Receive Date: 20100402
  Receipt Date: 20100318
  Transmission Date: 20101027
  Serious: No
  Sender: FDA-Public Use
  Company Number: US-B.I. PHARMACEUTICALS,INC./RIDGEFIELD-2010-BP-00793BP

PATIENT
  Sex: Male

DRUGS (8)
  1. COMBIVENT [Suspect]
     Indication: CHRONIC OBSTRUCTIVE PULMONARY DISEASE
     Dosage: 8 PUF
     Route: 055
     Dates: start: 19970101
  2. METFORMIN (GLUCOPHAGE) [Concomitant]
     Indication: DIABETES MELLITUS
  3. PRAVASTATIN [Concomitant]
     Indication: BLOOD CHOLESTEROL INCREASED
  4. FLUOXETINE [Concomitant]
     Indication: ANXIETY
  5. BENZAPRIL [Concomitant]
     Indication: HYPERTENSION
  6. GLIMEPIRIDE [Concomitant]
     Indication: DIABETES MELLITUS
  7. THEOPHYLLINE [Concomitant]
     Indication: CHRONIC OBSTRUCTIVE PULMONARY DISEASE
  8. OXYGEN [Concomitant]
     Indication: CHRONIC OBSTRUCTIVE PULMONARY DISEASE

REACTIONS (1)
  - THERAPEUTIC RESPONSE DECREASED [None]
